FAERS Safety Report 13083910 (Version 4)
Quarter: 2017Q3

REPORT INFORMATION
  Report Type: Spontaneous
  Country: IN (occurrence: IN)
  Receive Date: 20170104
  Receipt Date: 20170918
  Transmission Date: 20171127
  Serious: Yes (Other)
  Sender: FDA-Public Use
  Company Number: IN-SUN PHARMACEUTICAL INDUSTRIES LTD-2016R1-130711

PATIENT
  Age: 61 Year
  Sex: Male

DRUGS (1)
  1. DICLOFENAC [Suspect]
     Active Substance: DICLOFENAC
     Indication: DIABETIC RETINAL OEDEMA
     Dosage: INTRAVITREAL (SYSTEMIC PREPARATION) 450 MG/0.03 ML
     Route: 065
     Dates: start: 20150314

REACTIONS (4)
  - Macular fibrosis [Recovered/Resolved]
  - Retinal degeneration [Recovering/Resolving]
  - Internal limiting membrane peeling [Recovered/Resolved]
  - Retinal toxicity [Recovering/Resolving]
